FAERS Safety Report 6250400-2 (Version None)
Quarter: 2009Q2

REPORT INFORMATION
  Report Type: 
  Country: None (occurrence: None)
  Receive Date: 20090630
  Receipt Date: 20090625
  Transmission Date: 20091009
  Serious: Yes (Hospitalization)
  Sender: FDA-Public Use
  Company Number: US-BRISTOL-MYERS SQUIBB COMPANY-14668826

PATIENT
  Age: 40 Year
  Sex: Male

DRUGS (3)
  1. SPRYCEL [Suspect]
     Indication: BLAST CRISIS IN MYELOGENOUS LEUKAEMIA
     Dosage: INITIALLY RECEIVED 70MG PO TWICE DAILY INCREASED ON 03JUN09 TO 100MG DAILY.
     Route: 048
  2. METFORMIN HCL [Concomitant]
     Route: 048
  3. ZOFRAN [Concomitant]
     Route: 048

REACTIONS (2)
  - COLITIS [None]
  - INTESTINAL ISCHAEMIA [None]
